FAERS Safety Report 23293752 (Version 2)
Quarter: 2023Q4

REPORT INFORMATION
  Report Type: Report from Study
  Country: CA (occurrence: CA)
  Receive Date: 20231213
  Receipt Date: 20231221
  Transmission Date: 20240110
  Serious: Yes (Other)
  Sender: FDA-Public Use
  Company Number: CA-JNJFOC-20231209172

PATIENT
  Age: 61 Year
  Sex: Female

DRUGS (1)
  1. SIMPONI [Suspect]
     Active Substance: GOLIMUMAB
     Indication: Rheumatoid arthritis
     Route: 058
     Dates: start: 20231003, end: 20231212

REACTIONS (9)
  - Rash [Not Recovered/Not Resolved]
  - Auricular swelling [Not Recovered/Not Resolved]
  - Speech disorder [Not Recovered/Not Resolved]
  - Dry skin [Not Recovered/Not Resolved]
  - Urinary tract infection [Unknown]
  - Throat irritation [Not Recovered/Not Resolved]
  - Piloerection [Unknown]
  - Muscle fatigue [Recovering/Resolving]
  - Skin fissures [Unknown]

NARRATIVE: CASE EVENT DATE: 20231010
